FAERS Safety Report 15532846 (Version 1)
Quarter: 2018Q4

REPORT INFORMATION
  Report Type: Spontaneous
  Country: ES (occurrence: ES)
  Receive Date: 20181019
  Receipt Date: 20181019
  Transmission Date: 20190205
  Serious: Yes (Other)
  Sender: FDA-Public Use
  Company Number: ES-009507513-1810ESP005553

PATIENT
  Sex: Male

DRUGS (4)
  1. CIDOFOVIR. [Suspect]
     Active Substance: CIDOFOVIR
     Indication: CYTOMEGALOVIRUS INFECTION
     Dosage: UNK
  2. LETERMOVIR [Suspect]
     Active Substance: LETERMOVIR
     Indication: CYTOMEGALOVIRUS INFECTION
     Dosage: UNK
     Route: 048
  3. GLOBULIN, IMMUNE [Concomitant]
     Active Substance: HUMAN IMMUNOGLOBULIN G
     Dosage: UNK
  4. CYTOTOXIC T LYMPHOCYTES [Concomitant]
     Dosage: UNK

REACTIONS (3)
  - Cytomegalovirus infection [Unknown]
  - Viral load increased [Unknown]
  - Product use in unapproved indication [Unknown]
